FAERS Safety Report 19080794 (Version 3)
Quarter: 2021Q2

REPORT INFORMATION
  Report Type: Spontaneous
  Country: US (occurrence: US)
  Receive Date: 20210401
  Receipt Date: 20210521
  Transmission Date: 20210717
  Serious: Yes (Hospitalization, Other)
  Sender: FDA-Public Use
  Company Number: US-AUROBINDO-AUR-APL-2021-012664

PATIENT
  Age: 55 Year
  Sex: Male
  Weight: 108.9 kg

DRUGS (5)
  1. ACETAMINOPHEN. [Suspect]
     Active Substance: ACETAMINOPHEN
     Indication: PRODUCT USED FOR UNKNOWN INDICATION
     Dosage: UNK, 5?15
     Route: 065
  2. TRAMADOL HYDROCHLORIDE TABLETS USP 50 MG [Suspect]
     Active Substance: TRAMADOL HYDROCHLORIDE
     Indication: PRODUCT USED FOR UNKNOWN INDICATION
     Dosage: BETWEEN 5?15 TABLETS, IMMEDIATE RELEASE
     Route: 065
  3. CODEINE [Suspect]
     Active Substance: CODEINE
     Indication: PRODUCT USED FOR UNKNOWN INDICATION
     Dosage: BETWEEN 5?15 TABLETS
     Route: 065
  4. ALPRAZOLAM TABLETS USP 2MG [Suspect]
     Active Substance: ALPRAZOLAM
     Indication: PRODUCT USED FOR UNKNOWN INDICATION
     Dosage: 30 DOSAGE FORM
     Route: 065
  5. LORAZEPAM TABLETS USP 1 MG [Suspect]
     Active Substance: LORAZEPAM
     Indication: PRODUCT USED FOR UNKNOWN INDICATION
     Dosage: 26 DOSAGE FORM
     Route: 065

REACTIONS (4)
  - Hypoglycaemia [Recovered/Resolved]
  - Hypertension [Unknown]
  - Somnolence [Unknown]
  - Overdose [Unknown]
